FAERS Safety Report 4530402-4 (Version None)
Quarter: 2004Q4

REPORT INFORMATION
  Report Type: 
  Country: None (occurrence: None)
  Receive Date: 20041215
  Receipt Date: 20041202
  Transmission Date: 20050328
  Serious: Yes (Hospitalization)
  Sender: FDA-Public Use
  Company Number: 2004CG02428

PATIENT
  Age: 53 Year
  Sex: Male

DRUGS (4)
  1. XYLOCAINE [Suspect]
     Indication: ARTHRALGIA
     Dates: start: 20041019, end: 20041019
  2. NIFLURIL [Suspect]
     Indication: ARTHRALGIA
     Dates: end: 20041103
  3. ACETYLSALICYLIC ACID [Suspect]
     Indication: ARTHRALGIA
     Dates: end: 20041103
  4. FELDENE [Concomitant]

REACTIONS (1)
  - STEVENS-JOHNSON SYNDROME [None]
